FAERS Safety Report 7226938-8 (Version None)
Quarter: 2011Q1

REPORT INFORMATION
  Report Type: 
  Country: None (occurrence: None)
  Receive Date: 20110114
  Receipt Date: 20110106
  Transmission Date: 20110831
  Serious: Yes (Other)
  Sender: FDA-Public Use
  Company Number: JP-JNJFOC-20110103091

PATIENT
  Age: 69 Year
  Sex: Male

DRUGS (7)
  1. SULTOPRIDE [Suspect]
     Indication: ILL-DEFINED DISORDER
     Route: 048
  2. TIMIPERONE [Suspect]
     Indication: ILL-DEFINED DISORDER
     Route: 065
  3. PROMETHAZINE [Concomitant]
     Indication: ILL-DEFINED DISORDER
     Route: 048
  4. FLUNITRAZEPAM [Concomitant]
     Indication: ILL-DEFINED DISORDER
     Route: 048
  5. RISPERDAL [Suspect]
     Indication: SCHIZOPHRENIA
     Route: 048
  6. DIAZEPAM [Concomitant]
     Indication: ILL-DEFINED DISORDER
     Route: 048
  7. TRIHEXYPHENIDYL [Concomitant]
     Indication: ILL-DEFINED DISORDER
     Route: 048

REACTIONS (6)
  - LIVER DISORDER [None]
  - NEUROLEPTIC MALIGNANT SYNDROME [None]
  - RESPIRATORY FAILURE [None]
  - RHABDOMYOLYSIS [None]
  - RENAL FAILURE [None]
  - PNEUMONIA ASPIRATION [None]
